FAERS Safety Report 5322492-6 (Version None)
Quarter: 2007Q2

REPORT INFORMATION
  Report Type: 
  Country: None (occurrence: None)
  Receive Date: 20070511
  Receipt Date: 20070501
  Transmission Date: 20071010
  Serious: Yes (Death, Hospitalization)
  Sender: FDA-Public Use
  Company Number: US-MERCK-0705USA00633

PATIENT

DRUGS (1)
  1. PRIMAXIN [Suspect]
     Route: 042

REACTIONS (1)
  - DEATH [None]
